FAERS Safety Report 4714423-4 (Version None)
Quarter: 2005Q3

REPORT INFORMATION
  Report Type: 
  Country: None (occurrence: None)
  Receive Date: 20050714
  Receipt Date: 20050707
  Transmission Date: 20060218
  Serious: Yes (Hospitalization)
  Sender: FDA-Public Use
  Company Number: US-JNJFOC-20050502285

PATIENT
  Age: 52 Year
  Sex: Male

DRUGS (2)
  1. DURAGESIC-100 [Suspect]
     Route: 062
     Dates: start: 19990101
  2. FENTANYL [Suspect]
     Route: 062

REACTIONS (4)
  - ANXIETY [None]
  - FEELING JITTERY [None]
  - NERVOUSNESS [None]
  - PANCREATITIS [None]
